FAERS Safety Report 8434195-X (Version None)
Quarter: 2012Q2

REPORT INFORMATION
  Report Type: 
  Country: None (occurrence: None)
  Receive Date: 20120613
  Receipt Date: 20120606
  Transmission Date: 20120825
  Serious: Yes (Death, Hospitalization)
  Sender: FDA-Public Use
  Company Number: JP-CELGENEUS-087-50794-12061665

PATIENT
  Sex: Male
  Weight: 48 kg

DRUGS (9)
  1. LEVOFLOXACIN [Concomitant]
     Route: 065
     Dates: end: 20120315
  2. FUNGUARD [Concomitant]
     Route: 065
     Dates: start: 20120313, end: 20120323
  3. MEROPENEM [Concomitant]
     Route: 065
     Dates: start: 20120424, end: 20120509
  4. NOVOLIN R [Concomitant]
     Route: 065
     Dates: end: 20120508
  5. TARGOCID [Concomitant]
     Route: 065
     Dates: start: 20120503, end: 20120507
  6. VIDAZA [Suspect]
     Indication: MYELODYSPLASTIC SYNDROME
     Dosage: 75 MILLIGRAM/SQ. METER
     Route: 041
     Dates: start: 20120313, end: 20120319
  7. MEROPENEM [Concomitant]
     Route: 065
     Dates: start: 20120315, end: 20120323
  8. PLATELETS [Concomitant]
     Route: 041
  9. RBC TRANSFUSION [Concomitant]
     Route: 041

REACTIONS (2)
  - PNEUMONIA [None]
  - ORAL INFECTION [None]
